FAERS Safety Report 8921026 (Version 3)
Quarter: 2014Q4

REPORT INFORMATION
  Report Type: Spontaneous
  Country: US (occurrence: US)
  Receive Date: 20121121
  Receipt Date: 20141013
  Transmission Date: 20150529
  Serious: Yes (Hospitalization, Other)
  Sender: FDA-Public Use
  Company Number: US-009507513-1211USA007535

PATIENT
  Sex: Female

DRUGS (1)
  1. NUVARING [Suspect]
     Active Substance: ETHINYL ESTRADIOL\ETONOGESTREL
     Indication: CONTRACEPTION
     Dosage: UNK
     Route: 067
     Dates: start: 200610, end: 20101008

REACTIONS (6)
  - Deep vein thrombosis [Unknown]
  - Anticoagulation drug level below therapeutic [Recovered/Resolved]
  - Pulmonary embolism [Unknown]
  - Tricuspid valve incompetence [Unknown]
  - Pain in extremity [Unknown]
  - Polycystic ovaries [Unknown]

NARRATIVE: CASE EVENT DATE: 201009
